FAERS Safety Report 9293417 (Version 1)
Quarter: 2013Q2

REPORT INFORMATION
  Report Type: Spontaneous
  Country: JP (occurrence: JP)
  Receive Date: 20130516
  Receipt Date: 20130516
  Transmission Date: 20140414
  Serious: Yes (Hospitalization)
  Sender: FDA-Public Use
  Company Number: JP-TEVA-403752ISR

PATIENT
  Age: 58 Year
  Sex: Female

DRUGS (2)
  1. CARBOPLATIN [Suspect]
     Indication: ENDOMETRIAL CANCER
     Dosage: AUC 5 ON DAY 0
  2. DOCETAXEL [Suspect]
     Indication: ENDOMETRIAL CANCER
     Dosage: 70 MG/M2 ON DAY 0

REACTIONS (1)
  - Pyomyositis [Recovering/Resolving]
